FAERS Safety Report 9961530 (Version 3)
Quarter: 2014Q2

REPORT INFORMATION
  Report Type: Spontaneous
  Country: US (occurrence: US)
  Receive Date: 20140305
  Receipt Date: 20140416
  Transmission Date: 20141212
  Serious: Yes (Death, Hospitalization)
  Sender: FDA-Public Use
  Company Number: US-ACTELION-A-NJ2014-95521

PATIENT
  Age: 53 Year
  Sex: Female

DRUGS (1)
  1. OPSUMIT [Suspect]
     Indication: PULMONARY ARTERIAL HYPERTENSION
     Dosage: 10 MG, QD
     Route: 048
     Dates: start: 20131205, end: 20140312

REACTIONS (9)
  - Lung transplant rejection [Fatal]
  - Respiratory failure [Fatal]
  - Bacteraemia [Unknown]
  - Pseudomonas infection [Unknown]
  - Staphylococcal infection [Unknown]
  - Obliterative bronchiolitis [Unknown]
  - General physical health deterioration [Unknown]
  - Dyspnoea [Unknown]
  - Disease progression [Unknown]
